FAERS Safety Report 12378864 (Version 2)
Quarter: 2016Q3

REPORT INFORMATION
  Report Type: Spontaneous
  Country: None (occurrence: US)
  Receive Date: 20160517
  Receipt Date: 20160901
  Transmission Date: 20161109
  Serious: No
  Sender: FDA-Public Use
  Company Number: US-RELYPSA-RLY2016000228

PATIENT

DRUGS (9)
  1. NEXIUM [Concomitant]
     Active Substance: ESOMEPRAZOLE MAGNESIUM
     Indication: GASTROOESOPHAGEAL REFLUX DISEASE
  2. VELTASSA [Suspect]
     Active Substance: PATIROMER
     Indication: HYPERKALAEMIA
     Dosage: UNK
     Route: 048
     Dates: start: 201603, end: 20160319
  3. FENTANYL                           /00174602/ [Concomitant]
     Active Substance: FENTANYL
     Indication: PAIN
  4. TACROLIMUS. [Concomitant]
     Active Substance: TACROLIMUS
     Indication: TRANSPLANT REJECTION
  5. PRAVASTATIN                        /00880402/ [Concomitant]
     Active Substance: PRAVASTATIN SODIUM
  6. METOPROLOL                         /00376902/ [Concomitant]
     Active Substance: METOPROLOL
     Indication: HYPERTENSION
  7. LACTULOSE. [Concomitant]
     Active Substance: LACTULOSE
     Indication: CONSTIPATION
  8. VITAMIN D                          /00107901/ [Concomitant]
     Active Substance: ERGOCALCIFEROL
  9. PROMETHAZINE                       /00033002/ [Concomitant]
     Active Substance: PROMETHAZINE HYDROCHLORIDE
     Indication: NAUSEA
     Dosage: UNK

REACTIONS (1)
  - Constipation [Recovered/Resolved]

NARRATIVE: CASE EVENT DATE: 201603
